FAERS Safety Report 23660181 (Version 2)
Quarter: 2024Q4

REPORT INFORMATION
  Report Type: Spontaneous
  Country: US (occurrence: US)
  Receive Date: 20240321
  Receipt Date: 20241106
  Transmission Date: 20250115
  Serious: Yes (Hospitalization)
  Sender: FRESENIUS KABI
  Company Number: US-FreseniusKabi-FK202404379

PATIENT
  Age: 56 Year
  Sex: Female
  Weight: 39 kg

DRUGS (11)
  1. MESNA [Suspect]
     Active Substance: MESNA
     Indication: B-cell type acute leukaemia
     Dosage: CYCLE: 1, 3, 5, 7. SCHEDULE: DAYS 1-3
     Route: 042
     Dates: start: 20240124
  2. METHYLPREDNISOLONE SODIUM SUCCINATE [Suspect]
     Active Substance: METHYLPREDNISOLONE SODIUM SUCCINATE
     Indication: B-cell type acute leukaemia
     Dosage: CYCLE 2, 4, 6, 8. SCHEDULE: EVERY 12 HRS X 6 DOSES, DAYS 1- 3
     Route: 042
     Dates: start: 20240124
  3. RITUXIMAB [Suspect]
     Active Substance: RITUXIMAB
     Indication: B-cell type acute leukaemia
     Dosage: CYCLE: 1-4, SCHEDULE: DAY 1, DAY 8?FORM OF ADMIN. SOLUTION FOR INFUSION
     Route: 042
     Dates: start: 20240124
  4. CYTARABINE [Suspect]
     Active Substance: CYTARABINE
     Indication: B-cell type acute leukaemia
     Dosage: CYCLE: 2, 4, 6, 8. SCHEDULE: EVERY 12 HRS X 4, DAYS 2, 3
     Route: 042
     Dates: start: 20240124
  5. CYTARABINE [Suspect]
     Active Substance: CYTARABINE
     Dosage: IT CHEMOTHERAPY, CYCLE: 1-4. SCHEDULE: DAY 2, DAY 8
     Route: 037
     Dates: start: 20240124
  6. DOXORUBICIN HYDROCHLORIDE [Suspect]
     Active Substance: DOXORUBICIN HYDROCHLORIDE
     Indication: B-cell type acute leukaemia
     Dosage: CYCLE: 1, 3, 5, 7. SCHEDULE: DAY4
     Route: 042
     Dates: start: 20240124
  7. METHOTREXATE SODIUM [Suspect]
     Active Substance: METHOTREXATE SODIUM
     Indication: B-cell type acute leukaemia
     Dosage: CYCLE: 2, 4, 6, 8, SCHEDULE: DAY 1
     Route: 042
     Dates: start: 20240124
  8. METHOTREXATE SODIUM [Suspect]
     Active Substance: METHOTREXATE SODIUM
     Dosage: CYCLE: 2, 4, 6, 8, REGIMEN # 2 SCHEDULE: DAY 2, DAY 8
     Route: 037
     Dates: start: 20240124
  9. VINCRISTINE SULFATE [Suspect]
     Active Substance: VINCRISTINE SULFATE
     Indication: B-cell type acute leukaemia
     Dosage: CYCLE: 1, 3, 5, 7. SCHEDULE: DAY 1, DAY 8
     Route: 042
     Dates: start: 20240124
  10. CYCLOPHOSPHAMIDE [Suspect]
     Active Substance: CYCLOPHOSPHAMIDE
     Indication: B-cell type acute leukaemia
     Dosage: CYCLE: 1, 3, 5, 7. SCHEDULE: EVERY 12 HRS X 6 DOSES, EVERY 12 HRS X6 DOSES, DAYS 1-3
     Route: 042
     Dates: start: 20240124
  11. DEXAMETHASONE [Suspect]
     Active Substance: DEXAMETHASONE
     Indication: B-cell type acute leukaemia
     Dosage: CYCLE: 1, 3, 5, 7; SCHEDULE: DAYS 1-4, DAYS 11-14
     Dates: start: 20240124

REACTIONS (1)
  - Supraventricular tachycardia [Recovered/Resolved]

NARRATIVE: CASE EVENT DATE: 20240205
